FAERS Safety Report 11936980 (Version 2)
Quarter: 2016Q2

REPORT INFORMATION
  Report Type: Spontaneous
  Country: US (occurrence: US)
  Receive Date: 20160121
  Receipt Date: 20160526
  Transmission Date: 20160815
  Serious: No
  Sender: FDA-Public Use
  Company Number: US-GLAXOSMITHKLINE-US2016GSK007632

PATIENT
  Age: 61 Year
  Sex: Female

DRUGS (10)
  1. LISINOPRIL. [Concomitant]
     Active Substance: LISINOPRIL
  2. LINZESS [Concomitant]
     Active Substance: LINACLOTIDE
  3. LAMICTAL [Suspect]
     Active Substance: LAMOTRIGINE
     Indication: AFFECTIVE DISORDER
     Dosage: 100 MG, BID
     Route: 048
  4. SYMBICORT [Concomitant]
     Active Substance: BUDESONIDE\FORMOTEROL FUMARATE DIHYDRATE
  5. PREMARIN [Concomitant]
     Active Substance: ESTROGENS, CONJUGATED
  6. HYDROCHLORTHIAZIDE [Concomitant]
     Active Substance: HYDROCHLOROTHIAZIDE
  7. LAMICTAL [Suspect]
     Active Substance: LAMOTRIGINE
     Indication: MOOD SWINGS
  8. XALATAN [Concomitant]
     Active Substance: LATANOPROST
  9. SINGULAIR [Concomitant]
     Active Substance: MONTELUKAST SODIUM
  10. PROVENTIL [Concomitant]
     Active Substance: ALBUTEROL

REACTIONS (9)
  - Bronchitis [Unknown]
  - Malaise [Unknown]
  - Sinus congestion [Unknown]
  - Headache [Unknown]
  - Sinusitis [Unknown]
  - Sinusitis [Recovering/Resolving]
  - Tremor [Recovered/Resolved]
  - Paranasal sinus discomfort [Unknown]
  - Eye disorder [Recovered/Resolved]

NARRATIVE: CASE EVENT DATE: 201605
